FAERS Safety Report 24604999 (Version 10)
Quarter: 2025Q3

REPORT INFORMATION
  Report Type: Spontaneous
  Country: US (occurrence: US)
  Receive Date: 20241111
  Receipt Date: 20250724
  Transmission Date: 20251021
  Serious: No
  Sender: PFIZER
  Company Number: US-PFIZER INC-202400293813

PATIENT
  Age: 10 Year
  Sex: Male

DRUGS (3)
  1. GENOTROPIN [Suspect]
     Active Substance: SOMATROPIN
     Indication: Growth hormone deficiency
     Dosage: 1 MG, DAILY BETWEEN 8 AND 8:30 AT NIGHT, ROTATES BETWEEN BUTT AND THIGHS
     Dates: start: 20241020
  2. GENOTROPIN [Suspect]
     Active Substance: SOMATROPIN
     Indication: Hypopituitarism
     Dosage: 0.7 (0.6 MG ALTERNATING WITH 0.8 MG, DAILY) MG/DAY, 7 DAYS/WEEK
  3. GENOTROPIN [Suspect]
     Active Substance: SOMATROPIN
     Indication: Growth hormone deficiency
     Dosage: 0.7 (0.6 MG ALTERNATING WITH 0.8 MG, DAILY) MG/DAY, 7 DAYS/WEEK

REACTIONS (7)
  - Drug dose omission by device [Unknown]
  - Wrong technique in device usage process [Unknown]
  - Poor quality device used [Unknown]
  - Device information output issue [Unknown]
  - Device breakage [Unknown]
  - Device material issue [Unknown]
  - Device leakage [Unknown]

NARRATIVE: CASE EVENT DATE: 20240101
